FAERS Safety Report 23375100 (Version 1)
Quarter: 2024Q1

REPORT INFORMATION
  Report Type: Spontaneous
  Country: US (occurrence: US)
  Receive Date: 20240106
  Receipt Date: 20240106
  Transmission Date: 20240410
  Serious: No
  Sender: FDA-Public Use
  Company Number: US-ABBVIE-5570272

PATIENT
  Sex: Male

DRUGS (2)
  1. HUMIRA [Suspect]
     Active Substance: ADALIMUMAB
     Indication: Product used for unknown indication
     Dosage: RAN OUT OF MEDICATION
     Route: 058
     Dates: end: 202312
  2. METHOTREXATE [Suspect]
     Active Substance: METHOTREXATE
     Indication: Product used for unknown indication
     Dosage: PRESERVATIVE-FREE , STRENGTH 25 MG
     Route: 065
     Dates: end: 20231219

REACTIONS (1)
  - Gait inability [Unknown]
